FAERS Safety Report 19429323 (Version 2)
Quarter: 2021Q3

REPORT INFORMATION
  Report Type: Spontaneous
  Country: JP (occurrence: JP)
  Receive Date: 20210617
  Receipt Date: 20210709
  Transmission Date: 20211014
  Serious: Yes (Other)
  Sender: FDA-Public Use
  Company Number: JP-ASTRAZENECA-2021A518659

PATIENT
  Age: 70 Year
  Sex: Male

DRUGS (10)
  1. SYMBICORT [Suspect]
     Active Substance: BUDESONIDE\FORMOTEROL FUMARATE DIHYDRATE
     Indication: ATYPICAL MYCOBACTERIAL INFECTION
     Dosage: DOSE UNKNOWN, FREQUENCY UNKNOWN UNKNOWN
     Route: 055
     Dates: start: 202106
  2. GASCON [Concomitant]
     Active Substance: DIMETHICONE
     Indication: GASTROINTESTINAL DISORDER
     Dosage: 80.0MG UNKNOWN
     Route: 048
  3. TRIMEBUTINE MALEATE [Concomitant]
     Active Substance: TRIMEBUTINE MALEATE
     Indication: GASTROINTESTINAL DISORDER
     Dosage: 100.0MG UNKNOWN
     Route: 048
  4. MIYA?BM [Concomitant]
     Active Substance: CLOSTRIDIUM BUTYRICUM SPORES STRAIN M-55
     Indication: GASTROINTESTINAL DISORDER
     Dosage: DOSE UNKNOWN
     Route: 048
  5. RIFAMPICIN [Concomitant]
     Active Substance: RIFAMPIN
     Indication: ATYPICAL MYCOBACTERIAL INFECTION
     Dosage: 350.0MG UNKNOWN
     Route: 048
     Dates: start: 202106
  6. ESANBUTOL [Concomitant]
     Active Substance: ETHAMBUTOL HYDROCHLORIDE
     Indication: ATYPICAL MYCOBACTERIAL INFECTION
     Dosage: 500.0MG UNKNOWN
     Route: 048
     Dates: start: 202106
  7. ONON [Concomitant]
     Active Substance: PRANLUKAST
     Indication: ATYPICAL MYCOBACTERIAL INFECTION
     Dosage: 115.0MG UNKNOWN
     Route: 048
     Dates: start: 202106
  8. LIPITOR [Concomitant]
     Active Substance: ATORVASTATIN CALCIUM
     Indication: HYPERLIPIDAEMIA
     Dosage: 10.0MG UNKNOWN
     Route: 048
  9. CLARITH [Concomitant]
     Active Substance: CLARITHROMYCIN
     Indication: ATYPICAL MYCOBACTERIAL INFECTION
     Dosage: 800.0MG UNKNOWN
     Route: 048
     Dates: start: 202106
  10. TALION [Concomitant]
     Indication: URTICARIA CHRONIC
     Dosage: 10.0MG UNKNOWN
     Route: 048

REACTIONS (3)
  - Blood testosterone increased [Unknown]
  - Off label use [Unknown]
  - Malignant neoplasm progression [Unknown]

NARRATIVE: CASE EVENT DATE: 20200818
